FAERS Safety Report 14836631 (Version 2)
Quarter: 2018Q2

REPORT INFORMATION
  Report Type: Spontaneous
  Country: US (occurrence: US)
  Receive Date: 20180502
  Receipt Date: 20180508
  Transmission Date: 20180711
  Serious: No
  Sender: FDA-Public Use
  Company Number: US-BEH-2018090221

PATIENT
  Age: 32 Year
  Sex: Female
  Weight: 94.35 kg

DRUGS (23)
  1. ONDANSETRON [Concomitant]
     Active Substance: ONDANSETRON
     Dosage: 8 MG, UNK, TAB
     Route: 065
     Dates: start: 20180407
  2. BUSPIRONE [Concomitant]
     Active Substance: BUSPIRONE HYDROCHLORIDE
     Dosage: 10 MG, UNK, TAB
     Route: 065
     Dates: start: 20180417
  3. CITALOPRAM [Concomitant]
     Active Substance: CITALOPRAM HYDROBROMIDE
     Dosage: 40 MG, UNK, TAB
     Route: 065
     Dates: start: 20180418
  4. AMPHETAMINE [Concomitant]
     Active Substance: AMPHETAMINE
     Dosage: UNK, CAP
     Route: 065
     Dates: start: 20180302
  5. TRAZODONE [Concomitant]
     Active Substance: TRAZODONE HYDROCHLORIDE
     Dosage: 100 MG, UNK, TAB
     Route: 065
     Dates: start: 20180301
  6. HIZENTRA [Suspect]
     Active Substance: HUMAN IMMUNOGLOBULIN G
     Indication: HYPOGAMMAGLOBULINAEMIA
     Dosage: 8 G, QW
     Route: 058
     Dates: start: 20180406
  7. DEXTROSE. [Concomitant]
     Active Substance: DEXTROSE
     Dosage: UNK, CAP
     Route: 065
     Dates: start: 20180328
  8. COLCHICIN [Concomitant]
     Active Substance: COLCHICINE
     Dosage: 0.6 MG, UNK, TAB
     Route: 065
     Dates: start: 20160408
  9. OMEPRAZOLE. [Concomitant]
     Active Substance: OMEPRAZOLE
     Dosage: 40 MG, UNK; CAP
     Route: 065
     Dates: start: 20180415
  10. HIZENTRA [Suspect]
     Active Substance: HUMAN IMMUNOGLOBULIN G
     Indication: PRIMARY IMMUNODEFICIENCY SYNDROME
     Dosage: 8 G, QW
     Route: 058
     Dates: start: 20180421, end: 20180421
  11. TYLENOL [Concomitant]
     Active Substance: ACETAMINOPHEN
     Indication: PREMEDICATION
     Route: 065
  12. LYRICA [Concomitant]
     Active Substance: PREGABALIN
     Dosage: 150 UNK, UNK, CAP
     Route: 065
     Dates: start: 20180302
  13. TOPIRAMATE. [Concomitant]
     Active Substance: TOPIRAMATE
     Dosage: 25 MG, UNK
     Route: 065
     Dates: start: 20180418
  14. METHOCARBAMOL. [Concomitant]
     Active Substance: METHOCARBAMOL
     Dosage: 500 MG, UNK, TAB
     Route: 065
     Dates: start: 20180408
  15. ZYRTEC [Concomitant]
     Active Substance: CETIRIZINE HYDROCHLORIDE
     Indication: PREMEDICATION
     Route: 065
  16. AMPHETAMINE [Concomitant]
     Active Substance: AMPHETAMINE
     Dosage: UNK
     Route: 065
     Dates: start: 20180328
  17. HYDROXYZINE HCL [Concomitant]
     Active Substance: HYDROXYZINE HYDROCHLORIDE
     Dosage: 10 MG, UNK, TAB
     Route: 065
     Dates: start: 20180418
  18. DOK PLUS [Concomitant]
     Active Substance: DOCUSATE SODIUM\SENNOSIDES
     Dosage: 100 MG, UNK, CAP
     Route: 065
     Dates: start: 20180408
  19. CLONAZEPAM. [Concomitant]
     Active Substance: CLONAZEPAM
     Dosage: 0.5 MG, UNK, TAB
     Route: 065
     Dates: start: 20180418
  20. TOPIRAMATE. [Concomitant]
     Active Substance: TOPIRAMATE
     Dosage: 100 MG, UNK
     Route: 065
     Dates: start: 20180301
  21. MONTELUKAST [Concomitant]
     Active Substance: MONTELUKAST SODIUM
     Dosage: 10 MG, UNK, TAB
     Route: 065
     Dates: start: 20180307
  22. DEXTROSE. [Concomitant]
     Active Substance: DEXTROSE
     Dosage: UNK, CAP
     Route: 065
     Dates: start: 20180302
  23. FUROSEMIDE. [Concomitant]
     Active Substance: FUROSEMIDE
     Dosage: 40 MG, UNK, TAB
     Route: 065
     Dates: start: 20180408

REACTIONS (15)
  - Infusion site erythema [Recovered/Resolved]
  - Asthenia [Recovered/Resolved]
  - Infusion site pain [Recovered/Resolved]
  - Nausea [Recovered/Resolved]
  - Diarrhoea [Recovered/Resolved]
  - Dizziness [Recovered/Resolved]
  - Nausea [Recovered/Resolved]
  - Headache [Recovered/Resolved]
  - Vomiting [Recovered/Resolved]
  - Infusion site pain [Recovered/Resolved]
  - Infusion site swelling [Recovered/Resolved]
  - Infusion site swelling [Recovered/Resolved]
  - Diarrhoea [Recovered/Resolved]
  - Infusion site erythema [Recovered/Resolved]
  - Vomiting [Recovered/Resolved]

NARRATIVE: CASE EVENT DATE: 20180406
